FAERS Safety Report 10136194 (Version 1)
Quarter: 2014Q2

REPORT INFORMATION
  Report Type: Report from Study
  Country: CA (occurrence: CA)
  Receive Date: 20140429
  Receipt Date: 20140429
  Transmission Date: 20141212
  Serious: Yes (Other)
  Sender: FDA-Public Use
  Company Number: CA-BRISTOL-MYERS SQUIBB COMPANY-20640264

PATIENT
  Age: 72 Year
  Sex: Male

DRUGS (4)
  1. ORENCIA [Suspect]
     Indication: RHEUMATOID ARTHRITIS
     Dosage: 1DF:1000 UNIT NOS.
     Dates: start: 20061102
  2. PREDNISONE [Concomitant]
  3. SOTALOL [Concomitant]
  4. BISOPROLOL [Concomitant]

REACTIONS (1)
  - Arthropathy [Unknown]
